FAERS Safety Report 7939501-8 (Version None)
Quarter: 2011Q4

REPORT INFORMATION
  Report Type: 
  Country: None (occurrence: None)
  Receive Date: 20111125
  Receipt Date: 20111117
  Transmission Date: 20120403
  Serious: Yes (Other)
  Sender: FDA-Public Use
  Company Number: US-AMGEN-USASP2011056725

PATIENT
  Age: 79 Year
  Sex: Female

DRUGS (1)
  1. ENBREL [Suspect]
     Indication: RHEUMATOID ARTHRITIS
     Dosage: 50 MG, QWK
     Dates: start: 20100201, end: 20101031

REACTIONS (9)
  - ASTHENIA [None]
  - SPINAL DISORDER [None]
  - LARYNGITIS [None]
  - OVERDOSE [None]
  - POOR QUALITY SLEEP [None]
  - ERYTHEMA [None]
  - CHEST DISCOMFORT [None]
  - NASOPHARYNGITIS [None]
  - BRONCHITIS [None]
